FAERS Safety Report 15827311 (Version 1)
Quarter: 2019Q1

REPORT INFORMATION
  Report Type: Spontaneous
  Country: GB (occurrence: GB)
  Receive Date: 20190115
  Receipt Date: 20190115
  Transmission Date: 20190417
  Serious: Yes (Other)
  Sender: FDA-Public Use
  Company Number: GB-MYLANLABS-2019M1002942

PATIENT
  Age: 75 Year
  Sex: Female

DRUGS (4)
  1. COCODAMOL [Concomitant]
     Active Substance: ACETAMINOPHEN\CODEINE PHOSPHATE
     Indication: ARTHRITIS
     Dosage: UNK
  2. MORPHINE [Concomitant]
     Active Substance: MORPHINE
     Indication: ARTHRITIS
     Dosage: UNK
  3. LOSARTAN. [Suspect]
     Active Substance: LOSARTAN
     Indication: PRODUCT USED FOR UNKNOWN INDICATION
     Dosage: UNK
     Dates: start: 201806, end: 20180615
  4. FUROSEMIDE. [Suspect]
     Active Substance: FUROSEMIDE
     Indication: PRODUCT USED FOR UNKNOWN INDICATION
     Dosage: UNK
     Dates: start: 201806

REACTIONS (15)
  - Fatigue [Recovering/Resolving]
  - Diarrhoea [Recovering/Resolving]
  - Dizziness [Recovering/Resolving]
  - Chromaturia [Recovering/Resolving]
  - Rash pruritic [Recovering/Resolving]
  - Back pain [Recovering/Resolving]
  - White blood cells urine positive [Unknown]
  - Swelling [Unknown]
  - Malaise [Recovering/Resolving]
  - Headache [Recovering/Resolving]
  - Arthralgia [Recovering/Resolving]
  - Renal pain [Recovering/Resolving]
  - Pancreatitis [Unknown]
  - Paraesthesia [Recovering/Resolving]
  - Depression [Recovering/Resolving]

NARRATIVE: CASE EVENT DATE: 201806
